FAERS Safety Report 7933368-X (Version None)
Quarter: 2011Q4

REPORT INFORMATION
  Report Type: 
  Country: None (occurrence: None)
  Receive Date: 20111122
  Receipt Date: 20111122
  Transmission Date: 20120403
  Serious: No
  Sender: FDA-Public Use
  Company Number: None

PATIENT
  Sex: Female
  Weight: 90.718 kg

DRUGS (1)
  1. DILTIAZEM [Suspect]
     Indication: HYPERTENSION
     Dosage: ONE PILL
     Route: 048

REACTIONS (7)
  - TREATMENT NONCOMPLIANCE [None]
  - DRUG INTERACTION [None]
  - MUSCULAR WEAKNESS [None]
  - DYSPEPSIA [None]
  - ERYTHEMA [None]
  - PRODUCT QUALITY ISSUE [None]
  - SKIN ATROPHY [None]
